FAERS Safety Report 7474493-X (Version None)
Quarter: 2011Q2

REPORT INFORMATION
  Report Type: 
  Country: None (occurrence: None)
  Receive Date: 20110512
  Receipt Date: 20101207
  Transmission Date: 20111010
  Serious: No
  Sender: FDA-Public Use
  Company Number: US-BAYER-2010-004963

PATIENT
  Age: 55 Year
  Sex: Female

DRUGS (2)
  1. AVELOX [Suspect]
     Indication: SINUSITIS
     Dosage: UNK UNK, QD
     Route: 048
     Dates: start: 20101201, end: 20101202
  2. TYLENOL SINUS MEDICATION [Concomitant]

REACTIONS (6)
  - ANXIETY [None]
  - DIARRHOEA [None]
  - PALPITATIONS [None]
  - PANIC ATTACK [None]
  - VOMITING [None]
  - TREMOR [None]
